FAERS Safety Report 20869747 (Version 2)
Quarter: 2022Q2

REPORT INFORMATION
  Report Type: Spontaneous
  Country: US (occurrence: US)
  Receive Date: 20220525
  Receipt Date: 20220617
  Transmission Date: 20220720
  Serious: No
  Sender: FDA-Public Use
  Company Number: US-BRISTOL-MYERS SQUIBB COMPANY-2022-031024

PATIENT
  Age: 86 Year
  Sex: Female

DRUGS (17)
  1. REVLIMID [Suspect]
     Active Substance: LENALIDOMIDE
     Indication: Plasma cell myeloma
     Dosage: TAKE 1 CAPSULE BY MOUTH DAILY FOR 21 DAYS , THEN FOLLOWED BY 7 DAYS OFF
     Route: 048
     Dates: start: 20220402
  2. REVLIMID [Suspect]
     Active Substance: LENALIDOMIDE
     Indication: Diffuse large B-cell lymphoma
     Route: 048
  3. ALLOPURINOL TAB 100MG [Concomitant]
     Indication: Product used for unknown indication
  4. CARBAMAZEPIN TAB 400MG ER [Concomitant]
     Indication: Product used for unknown indication
  5. CELEBREX CAP 200MG [Concomitant]
     Indication: Product used for unknown indication
  6. FOSAMAX [Concomitant]
     Active Substance: ALENDRONATE SODIUM
     Indication: Product used for unknown indication
  7. LASIX TAB40MG [Concomitant]
     Indication: Product used for unknown indication
  8. LEVOTHYROXIN TAB 75MCG [Concomitant]
     Indication: Product used for unknown indication
  9. NEXIUM CAP 40MG [Concomitant]
     Indication: Product used for unknown indication
  10. PANTOPRAZOLE SODIUM [Concomitant]
     Active Substance: PANTOPRAZOLE SODIUM
     Indication: Product used for unknown indication
  11. PEPCID AC TAB 10MG [Concomitant]
     Indication: Product used for unknown indication
  12. POTASSIUM GL TAB ER 595MG [Concomitant]
     Indication: Product used for unknown indication
  13. PRINZIDE TAB 20-12.5 [Concomitant]
     Indication: Product used for unknown indication
  14. SUPARTZ INJ 25/2.5ML [Concomitant]
     Indication: Product used for unknown indication
  15. SYNVISC INJ 8MG/ML [Concomitant]
     Indication: Product used for unknown indication
  16. TEGRETOL-XRTAB 400MG [Concomitant]
     Indication: Product used for unknown indication
  17. ZOCOR TAB 20MG [Concomitant]
     Indication: Product used for unknown indication

REACTIONS (3)
  - Diarrhoea [Unknown]
  - Fatigue [Unknown]
  - Gastrointestinal disorder [Unknown]

NARRATIVE: CASE EVENT DATE: 20220527
